FAERS Safety Report 5729750-1 (Version None)
Quarter: 2008Q2

REPORT INFORMATION
  Report Type: 
  Country: None (occurrence: None)
  Receive Date: 20080506
  Receipt Date: 20080409
  Transmission Date: 20081010
  Serious: No
  Sender: FDA-Public Use
  Company Number: US-BOEHRINGER INGELHEIM GMBH, GERMANY-2008-BP-05641BP

PATIENT
  Age: 94 Year
  Sex: Male

DRUGS (5)
  1. FLOMAX [Suspect]
     Indication: BENIGN PROSTATIC HYPERPLASIA
     Route: 048
     Dates: start: 20080327, end: 20080406
  2. FLAGYL [Concomitant]
     Indication: CLOSTRIDIAL INFECTION
     Dates: start: 20080402, end: 20080412
  3. LISINOPRIL [Concomitant]
     Indication: HYPERTENSION
  4. COUMADIN [Concomitant]
     Indication: ATRIAL FIBRILLATION
  5. ALLOPURINOL [Concomitant]
     Indication: GOUT

REACTIONS (3)
  - ANOREXIA [None]
  - FLUID INTAKE REDUCED [None]
  - VOMITING PROJECTILE [None]
